FAERS Safety Report 8019215-9 (Version None)
Quarter: 2011Q4

REPORT INFORMATION
  Report Type: 
  Country: None (occurrence: None)
  Receive Date: 20111229
  Receipt Date: 20111223
  Transmission Date: 20120403
  Serious: Yes (Hospitalization)
  Sender: FDA-Public Use
  Company Number: DKLU1075628

PATIENT
  Age: 41 Year
  Sex: Female
  Weight: 136 kg

DRUGS (10)
  1. CLORAZ DIPOT (CLORAZEPATE DIPOTASSIUM) [Concomitant]
  2. TRILEPTAL [Concomitant]
  3. ZONEGRAN (ZONISAMIDE)(CAPSULE) [Concomitant]
  4. LOPRESSOR (METOPROLOL TARTRATE)(TABLET) [Concomitant]
  5. MULTIVITAMIN (VIGRAN)(TABLET) [Concomitant]
  6. OXCARBAZEPIN (OXCARBAZEPINE) [Concomitant]
  7. RISPERDAL [Concomitant]
  8. VIMPAT (LACOSAMIDE)(TABLET) [Concomitant]
  9. SABRIL [Suspect]
     Indication: PRODUCT USED FOR UNKNOWN INDICATION
     Dosage: 1500 MG MILLIGRAM(S), 2 IN 1 D, ORAL
     Route: 048
  10. FELBATOL (FELBAMATE)(TABLET) [Concomitant]

REACTIONS (5)
  - HYPERTENSION [None]
  - HEART RATE INCREASED [None]
  - PSYCHOTIC DISORDER [None]
  - PARANOIA [None]
  - DYSPNOEA [None]
